FAERS Safety Report 9979366 (Version 1)
Quarter: 2014Q1

REPORT INFORMATION
  Report Type: Report from Study
  Country: US (occurrence: US)
  Receive Date: 20140306
  Receipt Date: 20140306
  Transmission Date: 20141002
  Serious: No
  Sender: FDA-Public Use
  Company Number: US-ABBVIE-13P-163-1172925-00

PATIENT
  Age: 28 Year
  Sex: Female

DRUGS (4)
  1. HUMIRA [Suspect]
     Indication: CROHN^S DISEASE
     Dosage: 4 SHOTS INITIALLY TODAY, 1ST LOADING DOSE
     Route: 058
     Dates: start: 20131114, end: 20131114
  2. HUMIRA [Suspect]
     Indication: CROHN^S DISEASE
  3. PREDNISONE [Concomitant]
     Indication: CROHN^S DISEASE
     Dosage: WEANING OFF OF MEDICATION CURRENTLY
     Route: 048
     Dates: start: 201309
  4. CIPRO [Concomitant]
     Indication: PRODUCT USED FOR UNKNOWN INDICATION
     Dates: start: 2013

REACTIONS (1)
  - Injection site pain [Recovered/Resolved]
